FAERS Safety Report 5185317-8 (Version None)
Quarter: 2006Q4

REPORT INFORMATION
  Report Type: 
  Country: None (occurrence: None)
  Receive Date: 20061220
  Receipt Date: 20061213
  Transmission Date: 20070319
  Serious: Yes (Death, Other)
  Sender: FDA-Public Use
  Company Number: PHBS2006ES19459

PATIENT
  Age: 51 Year
  Sex: Female

DRUGS (4)
  1. CYCLOSPORINE [Suspect]
     Indication: LIVER TRANSPLANT
     Route: 065
  2. PREDNISONE TAB [Concomitant]
  3. METHYLPREDNISOLONE [Concomitant]
     Indication: LIVER TRANSPLANT REJECTION
     Dosage: 1 G/D
     Route: 042
  4. METHYLPREDNISOLONE [Concomitant]
     Dosage: 1 G/D
     Route: 042

REACTIONS (3)
  - LARGE CELL LUNG CANCER STAGE IV [None]
  - LIVER TRANSPLANT REJECTION [None]
  - METASTASES TO CENTRAL NERVOUS SYSTEM [None]
